FAERS Safety Report 9943103 (Version 1)
Quarter: 2014Q1

REPORT INFORMATION
  Report Type: Spontaneous
  Country: US (occurrence: US)
  Receive Date: 20140303
  Receipt Date: 20140303
  Transmission Date: 20141002
  Serious: Yes (Hospitalization, Other)
  Sender: FDA-Public Use
  Company Number: CHPA2014US003033

PATIENT
  Age: 22 Year
  Sex: Male

DRUGS (2)
  1. PRIVATE LABEL STRENGTH UNKNOWN [Suspect]
     Indication: SMOKING CESSATION THERAPY
     Dosage: 21 MG, QD
     Route: 062
     Dates: start: 201401, end: 20140218
  2. PRIVATE LABEL STRENGTH UNKNOWN [Suspect]
     Indication: OFF LABEL USE

REACTIONS (11)
  - Personality change [Recovered/Resolved]
  - Aggression [Recovered/Resolved]
  - Illogical thinking [Recovered/Resolved]
  - Obsessive thoughts [Recovered/Resolved]
  - Road traffic accident [Recovered/Resolved]
  - Anger [Recovered/Resolved]
  - Palpitations [Recovered/Resolved]
  - Anxiety [Recovered/Resolved]
  - Overdose [Unknown]
  - Feeling abnormal [Recovered/Resolved]
  - Sleep disorder [Recovered/Resolved]
